FAERS Safety Report 25801335 (Version 1)
Quarter: 2025Q3

REPORT INFORMATION
  Report Type: Spontaneous
  Country: US (occurrence: US)
  Receive Date: 20250915
  Receipt Date: 20250915
  Transmission Date: 20251020
  Serious: Yes (Other)
  Sender: CHIESI
  Company Number: US-CHIESI-2025CHF06425

PATIENT
  Age: 71 Year
  Sex: Male

DRUGS (2)
  1. KENGREAL [Suspect]
     Active Substance: CANGRELOR
     Indication: Percutaneous coronary intervention
     Route: 065
     Dates: start: 20250826
  2. KENGREAL [Suspect]
     Active Substance: CANGRELOR
     Route: 065
     Dates: start: 20250826

REACTIONS (4)
  - Vascular stent thrombosis [Unknown]
  - Off label use [Unknown]
  - Off label use [Unknown]
  - Off label use [Unknown]

NARRATIVE: CASE EVENT DATE: 20250826
